FAERS Safety Report 6619263-7 (Version None)
Quarter: 2010Q1

REPORT INFORMATION
  Report Type: 
  Country: None (occurrence: None)
  Receive Date: 20100303
  Receipt Date: 20100210
  Transmission Date: 20100710
  Serious: Yes (Life-Threatening)
  Sender: FDA-Public Use
  Company Number: NL-SOLVAY-00310000920

PATIENT
  Age: 35 Year
  Sex: Female

DRUGS (2)
  1. FEVARIN TABLET 50 MG (FLUVOXAMINE MALEATE) [Suspect]
     Indication: PANIC DISORDER
     Dosage: 50 MILLIGRAM(S)
     Dates: start: 19920101, end: 19920101
  2. BROMAZEPAM SANDOZ TABLET (BROMAZEPAM) [Concomitant]

REACTIONS (2)
  - ABDOMINAL PAIN [None]
  - SUICIDAL IDEATION [None]
